FAERS Safety Report 25617490 (Version 2)
Quarter: 2025Q3

REPORT INFORMATION
  Report Type: Spontaneous
  Country: AU (occurrence: AU)
  Receive Date: 20250729
  Receipt Date: 20250903
  Transmission Date: 20251020
  Serious: Yes (Death, Hospitalization, Other)
  Sender: SANDOZ
  Company Number: AU-002147023-NVSC2020AU000464

PATIENT
  Age: 44 Year
  Sex: Female

DRUGS (19)
  1. CARBOPLATIN [Suspect]
     Active Substance: CARBOPLATIN
     Indication: Hepatosplenic T-cell lymphoma
     Route: 065
  2. CYCLOPHOSPHAMIDE [Suspect]
     Active Substance: CYCLOPHOSPHAMIDE
     Indication: Hepatosplenic T-cell lymphoma
     Route: 065
  3. CYTARABINE [Suspect]
     Active Substance: CYTARABINE
     Dosage: 100 MG (9 DOSES OVER AN 18-WEEK)
     Route: 065
  4. CYTARABINE [Suspect]
     Active Substance: CYTARABINE
     Route: 065
  5. CYTARABINE [Suspect]
     Active Substance: CYTARABINE
     Dosage: UNK, QW
     Route: 037
  6. CYTARABINE [Suspect]
     Active Substance: CYTARABINE
     Dosage: UNK, QW2
     Route: 037
  7. CYTARABINE [Suspect]
     Active Substance: CYTARABINE
     Route: 065
  8. CYTARABINE [Suspect]
     Active Substance: CYTARABINE
     Indication: Hepatosplenic T-cell lymphoma
     Route: 065
  9. DEXAMETHASONE [Suspect]
     Active Substance: DEXAMETHASONE
     Indication: Hepatosplenic T-cell lymphoma
     Route: 065
  10. DOXORUBICIN HYDROCHLORIDE [Suspect]
     Active Substance: DOXORUBICIN HYDROCHLORIDE
     Indication: Hepatosplenic T-cell lymphoma
     Route: 065
  11. ETOPOSIDE [Suspect]
     Active Substance: ETOPOSIDE
     Indication: Hepatosplenic T-cell lymphoma
     Route: 065
  12. GEMCITABINE [Suspect]
     Active Substance: GEMCITABINE
     Indication: Hepatosplenic T-cell lymphoma
     Route: 065
  13. IFOSFAMIDE [Suspect]
     Active Substance: IFOSFAMIDE
     Indication: Hepatosplenic T-cell lymphoma
     Route: 065
  14. METHOTREXATE [Suspect]
     Active Substance: METHOTREXATE
     Route: 037
  15. METHOTREXATE [Suspect]
     Active Substance: METHOTREXATE
     Route: 037
  16. METHOTREXATE [Suspect]
     Active Substance: METHOTREXATE
     Indication: Hepatosplenic T-cell lymphoma
     Route: 065
  17. PRALATREXATE [Suspect]
     Active Substance: PRALATREXATE
     Indication: Hepatosplenic T-cell lymphoma
     Route: 065
  18. VINORELBINE [Suspect]
     Active Substance: VINORELBINE TARTRATE
     Indication: Hepatosplenic T-cell lymphoma
     Route: 065
  19. VINCRISTINE SULFATE [Suspect]
     Active Substance: VINCRISTINE SULFATE
     Indication: Hepatosplenic T-cell lymphoma
     Route: 065

REACTIONS (10)
  - Metastases to central nervous system [Fatal]
  - Paralysis [Fatal]
  - Quadriplegia [Fatal]
  - Generalised tonic-clonic seizure [Fatal]
  - Postictal state [Fatal]
  - Neutropenic sepsis [Unknown]
  - Hepatosplenic T-cell lymphoma [Unknown]
  - Malignant neoplasm progression [Unknown]
  - Drug intolerance [Unknown]
  - Product use in unapproved indication [Unknown]
